FAERS Safety Report 16165139 (Version 22)
Quarter: 2020Q3

REPORT INFORMATION
  Report Type: Report from Study
  Country: US (occurrence: US)
  Receive Date: 20190405
  Receipt Date: 20200821
  Transmission Date: 20201102
  Serious: Yes (Hospitalization)
  Sender: FDA-Public Use
  Company Number: US-ACTELION-A-NJ2019-186212

PATIENT
  Age: 56 Year
  Sex: Female
  Weight: 70.75 kg

DRUGS (15)
  1. VELETRI [Suspect]
     Active Substance: EPOPROSTENOL
     Dosage: 11.3 NG/KG, PER MIN
     Route: 042
  2. VELETRI [Suspect]
     Active Substance: EPOPROSTENOL
     Dosage: 7.4 NG/KG, PER MIN
     Route: 042
  3. VELETRI [Suspect]
     Active Substance: EPOPROSTENOL
     Dosage: 33.3 NG/KG, PER MIN
     Route: 042
  4. ADEMPAS [Suspect]
     Active Substance: RIOCIGUAT
     Indication: PRODUCT USED FOR UNKNOWN INDICATION
     Dosage: 2.0 MG, TID
     Route: 065
  5. LISINOPRIL. [Concomitant]
     Active Substance: LISINOPRIL
     Indication: FLUID RETENTION
  6. VELETRI [Suspect]
     Active Substance: EPOPROSTENOL
     Dosage: 10.7 NG/KG, PER MIN
     Route: 042
  7. VELETRI [Suspect]
     Active Substance: EPOPROSTENOL
     Dosage: 10.2 NG/KG, PER MIN
     Route: 042
  8. VELETRI [Suspect]
     Active Substance: EPOPROSTENOL
     Dosage: 22.5 NG/KG, PER MIN
     Route: 042
  9. VELETRI [Suspect]
     Active Substance: EPOPROSTENOL
     Dosage: 8.4 NG/KG, PER MIN
     Route: 042
  10. ADCIRCA [Concomitant]
     Active Substance: TADALAFIL
  11. VELETRI [Suspect]
     Active Substance: EPOPROSTENOL
     Dosage: 8.7 NG/KG, PER MIN
     Route: 042
  12. VELETRI [Suspect]
     Active Substance: EPOPROSTENOL
     Dosage: 6.1 NG/KG, PER MIN
     Route: 042
  13. VELETRI [Suspect]
     Active Substance: EPOPROSTENOL
     Dosage: UNK
     Route: 042
  14. OPSUMIT [Suspect]
     Active Substance: MACITENTAN
     Indication: PULMONARY ARTERIAL HYPERTENSION
     Dosage: 10 MG, QD
     Route: 048
  15. VELETRI [Suspect]
     Active Substance: EPOPROSTENOL
     Indication: PULMONARY ARTERIAL HYPERTENSION
     Dosage: 12.3 NG/KG, PER MIN
     Route: 042
     Dates: start: 20200418

REACTIONS (27)
  - Pain in jaw [Unknown]
  - Dizziness [Unknown]
  - Hypotension [Not Recovered/Not Resolved]
  - Dyspnoea [Not Recovered/Not Resolved]
  - Product dose omission issue [Unknown]
  - Dyspnoea exertional [Not Recovered/Not Resolved]
  - Abdominal discomfort [Unknown]
  - Fluid retention [Unknown]
  - Disease complication [Unknown]
  - Diarrhoea [Unknown]
  - Fatigue [Unknown]
  - Flushing [Unknown]
  - Blood potassium decreased [Unknown]
  - Condition aggravated [Unknown]
  - Chest pain [Unknown]
  - Dyspepsia [Not Recovered/Not Resolved]
  - Vomiting [Unknown]
  - Arthralgia [Unknown]
  - Blood sodium decreased [Unknown]
  - Pulmonary hypertension [Unknown]
  - Catheter site rash [Recovering/Resolving]
  - Chest discomfort [Not Recovered/Not Resolved]
  - Hospitalisation [Unknown]
  - Catheter site erythema [Unknown]
  - Pain [Unknown]
  - Abdominal pain [Not Recovered/Not Resolved]
  - Nasopharyngitis [Not Recovered/Not Resolved]

NARRATIVE: CASE EVENT DATE: 20190425
